FAERS Safety Report 7770785-5 (Version None)
Quarter: 2011Q3

REPORT INFORMATION
  Report Type: 
  Country: None (occurrence: None)
  Receive Date: 20110922
  Receipt Date: 20110418
  Transmission Date: 20111222
  Serious: No
  Sender: FDA-Public Use
  Company Number: US-ASTRAZENECA-2007UW25720

PATIENT
  Age: 41 Year
  Sex: Male
  Weight: 108 kg

DRUGS (2)
  1. SEROQUEL [Suspect]
     Indication: SLEEP DISORDER
     Dosage: 300 MG-600 MG
     Route: 048
     Dates: start: 20020501
  2. WELLBUTRIN [Concomitant]
     Dates: start: 20020101

REACTIONS (5)
  - OVERWEIGHT [None]
  - HYPERLIPIDAEMIA [None]
  - BLOOD CHOLESTEROL INCREASED [None]
  - TYPE 2 DIABETES MELLITUS [None]
  - OBESITY [None]
